FAERS Safety Report 9438077 (Version 1)
Quarter: 2013Q3

REPORT INFORMATION
  Report Type: Spontaneous
  Country: US (occurrence: US)
  Receive Date: 20130802
  Receipt Date: 20130802
  Transmission Date: 20140515
  Serious: No
  Sender: FDA-Public Use
  Company Number: US-BRISTOL-MYERS SQUIBB COMPANY-16802993

PATIENT
  Age: 89 Year
  Sex: Male
  Weight: 68.93 kg

DRUGS (9)
  1. COUMADIN [Suspect]
     Indication: ATRIAL FIBRILLATION
     Dosage: RESTARTED ON JUN12
  2. IMIQUIMOD [Interacting]
     Dosage: CREAM 24MAY12 STOPPED
     Route: 061
     Dates: start: 201205
  3. CARVEDILOL [Concomitant]
     Route: 048
  4. DIGOXIN [Concomitant]
     Route: 048
  5. FUROSEMIDE [Concomitant]
     Route: 048
  6. CRESTOR [Concomitant]
  7. FINASTERIDE [Concomitant]
  8. TAMSULOSIN [Concomitant]
     Route: 048
  9. ANDROGEL [Concomitant]

REACTIONS (2)
  - International normalised ratio increased [Unknown]
  - Drug interaction [Unknown]
